FAERS Safety Report 12905653 (Version 1)
Quarter: 2016Q4

REPORT INFORMATION
  Report Type: Spontaneous
  Country: US (occurrence: US)
  Receive Date: 20161103
  Receipt Date: 20161103
  Transmission Date: 20170207
  Serious: No
  Sender: FDA-Public Use
  Company Number: US-ELI_LILLY_AND_COMPANY-US201608002255

PATIENT
  Sex: Female

DRUGS (2)
  1. CYMBALTA [Suspect]
     Active Substance: DULOXETINE HYDROCHLORIDE
     Indication: PERSONALITY DISORDER
     Dosage: 30 MG, EACH EVENING
     Route: 065
     Dates: end: 20150920
  2. CYMBALTA [Suspect]
     Active Substance: DULOXETINE HYDROCHLORIDE
     Indication: MAJOR DEPRESSION
     Dosage: UNK, UNKNOWN
     Route: 065
     Dates: start: 20111014

REACTIONS (12)
  - Somnolence [Recovering/Resolving]
  - Crying [Recovering/Resolving]
  - Asthenia [Recovering/Resolving]
  - Mood altered [Recovering/Resolving]
  - Disturbance in attention [Recovering/Resolving]
  - Hypoaesthesia [Recovering/Resolving]
  - Apathy [Recovering/Resolving]
  - Diarrhoea [Recovering/Resolving]
  - Disturbance in social behaviour [Recovering/Resolving]
  - Drug withdrawal syndrome [Recovering/Resolving]
  - Impaired self-care [Recovering/Resolving]
  - Paraesthesia [Recovering/Resolving]
